FAERS Safety Report 7636472-9 (Version None)
Quarter: 2011Q3

REPORT INFORMATION
  Report Type: 
  Country: None (occurrence: None)
  Receive Date: 20110726
  Receipt Date: 20110718
  Transmission Date: 20111222
  Serious: Yes (Other)
  Sender: FDA-Public Use
  Company Number: FI-ABBOTT-11P-055-0840087-00

PATIENT
  Sex: Female

DRUGS (6)
  1. HUMIRA [Suspect]
     Indication: PRODUCT USED FOR UNKNOWN INDICATION
     Route: 058
     Dates: start: 20070401, end: 20100108
  2. PREDNISOLONE [Concomitant]
     Indication: PRODUCT USED FOR UNKNOWN INDICATION
     Route: 048
     Dates: start: 20070401
  3. METHOTREXATE [Concomitant]
     Indication: PRODUCT USED FOR UNKNOWN INDICATION
     Route: 048
     Dates: start: 20070401, end: 20080701
  4. METHOTREXATE [Concomitant]
     Dosage: DOSE DECREASED
     Route: 048
     Dates: start: 20080701, end: 20080801
  5. FOLIC ACID [Concomitant]
     Indication: PRODUCT USED FOR UNKNOWN INDICATION
     Route: 048
     Dates: start: 20070401
  6. IBANDRONATE SODIUM MONOHYDRATE [Concomitant]
     Indication: OSTEOPOROSIS
     Route: 048
     Dates: start: 20070801

REACTIONS (1)
  - RETINAL VEIN THROMBOSIS [None]
